FAERS Safety Report 8111683-7 (Version None)
Quarter: 2012Q1

REPORT INFORMATION
  Report Type: 
  Country: None (occurrence: None)
  Receive Date: 20120203
  Receipt Date: 20120124
  Transmission Date: 20120608
  Serious: Yes (Death, Life-Threatening, Hospitalization)
  Sender: FDA-Public Use
  Company Number: US-JNJFOC-20110611913

PATIENT
  Sex: Female
  Weight: 76.2 kg

DRUGS (41)
  1. DIOVAN HCT [Concomitant]
     Route: 048
     Dates: start: 20090922
  2. SEROQUEL [Concomitant]
     Dates: start: 20110311
  3. IBUPROFEN [Concomitant]
     Route: 048
     Dates: start: 20070611
  4. LIPITOR [Concomitant]
     Route: 048
     Dates: start: 20110826
  5. PROMETHAZINE W/ CODEINE [Concomitant]
     Indication: UPPER RESPIRATORY TRACT INFECTION
  6. ALLEGRA [Concomitant]
     Route: 048
     Dates: start: 20110722
  7. DARUNAVIR ETHANOLATE [Suspect]
     Route: 048
     Dates: start: 20110329, end: 20110531
  8. TRUVADA [Concomitant]
     Indication: HIV INFECTION
     Route: 048
     Dates: start: 20110329, end: 20110531
  9. STROVITE FORTE [Concomitant]
     Route: 048
     Dates: start: 20030821
  10. ADVAIR DISKUS 100/50 [Concomitant]
     Route: 055
     Dates: start: 20091002
  11. NORVASC [Concomitant]
     Route: 048
     Dates: start: 20100921
  12. DARUNAVIR ETHANOLATE [Suspect]
     Indication: HIV INFECTION
     Route: 048
     Dates: start: 20110816, end: 20110904
  13. RALTEGRAVIR [Concomitant]
     Route: 048
     Dates: start: 20110329, end: 20110531
  14. POTASSIUM CHLORIDE [Concomitant]
     Route: 048
     Dates: start: 20091123
  15. TRUVADA [Concomitant]
     Route: 048
     Dates: start: 20090922
  16. RITONAVIR [Suspect]
     Route: 048
     Dates: start: 20110816, end: 20110904
  17. METHADONE HCL [Concomitant]
     Dates: start: 20090818
  18. METHADONE HCL [Concomitant]
     Dates: start: 20110805
  19. VALTREX [Concomitant]
     Route: 048
     Dates: start: 20091019
  20. WESTCORT [Concomitant]
     Route: 061
     Dates: start: 20110617
  21. BACTRIM [Concomitant]
     Route: 048
     Dates: start: 20090918
  22. STROVITE [Concomitant]
     Route: 048
     Dates: start: 20060707
  23. ETRAVIRINE [Suspect]
     Indication: HIV INFECTION
     Route: 048
     Dates: start: 20110329, end: 20110531
  24. ABACAVIR [Suspect]
     Indication: HIV INFECTION
     Dates: start: 20110816
  25. DIOVAN HCT [Concomitant]
     Route: 048
     Dates: start: 20110805
  26. LAC-HYDRIN [Concomitant]
     Indication: DRY SKIN
     Route: 061
     Dates: start: 20110617
  27. LAMIVUDINE [Concomitant]
     Indication: HIV INFECTION
     Route: 048
     Dates: start: 20110816
  28. PROMETHAZINE W/ CODEINE [Concomitant]
     Indication: COUGH
  29. LOTRISONE [Concomitant]
     Dates: start: 20110722
  30. RITONAVIR [Suspect]
     Indication: HIV INFECTION
     Route: 048
     Dates: start: 20110329, end: 20110531
  31. RALTEGRAVIR [Concomitant]
     Indication: HIV INFECTION
     Route: 048
     Dates: start: 20110816, end: 20110904
  32. AMBIEN [Concomitant]
     Route: 048
     Dates: start: 20091020
  33. ZITHROMAX [Concomitant]
     Dates: start: 20101123
  34. METFORMIN HCL [Concomitant]
     Route: 048
     Dates: start: 20110502
  35. MULTI-VITAMINS [Concomitant]
  36. VALSARTAN [Concomitant]
  37. ADVAIR DISKUS 100/50 [Concomitant]
     Route: 055
     Dates: start: 20070820
  38. LOMOTIL [Concomitant]
     Indication: DIARRHOEA
     Route: 048
     Dates: start: 20100222
  39. PROVENTIL [Concomitant]
     Indication: DYSPNOEA
     Route: 055
     Dates: start: 20040224
  40. PERCOCET [Concomitant]
     Dates: start: 20101110
  41. ULTRACET [Concomitant]

REACTIONS (5)
  - RENAL FAILURE ACUTE [None]
  - RASH [None]
  - UROSEPSIS [None]
  - HEPATIC FAILURE [None]
  - SEPTIC SHOCK [None]
